FAERS Safety Report 11254881 (Version 1)
Quarter: 2015Q3

REPORT INFORMATION
  Report Type: Spontaneous
  Country: US (occurrence: US)
  Receive Date: 20150709
  Receipt Date: 20150709
  Transmission Date: 20151125
  Serious: Yes (Other)
  Sender: FDA-Public Use
  Company Number: US-BAYER-2015-373420

PATIENT
  Age: 12 Year
  Sex: Female
  Weight: 58.96 kg

DRUGS (1)
  1. COPPERTONE KIDS SPF 50 SPRAY [Suspect]
     Active Substance: AVOBENZONE\HOMOSALATE\OCTISALATE\OCTOCRYLENE\OXYBENZONE
     Indication: PROPHYLAXIS AGAINST SOLAR RADIATION
     Dosage: 1 DOSE, TID
     Route: 061
     Dates: start: 20150704, end: 20150706

REACTIONS (3)
  - Burning sensation [None]
  - Accidental exposure to product [None]
  - Eye burns [Not Recovered/Not Resolved]

NARRATIVE: CASE EVENT DATE: 20150704
